FAERS Safety Report 20852941 (Version 1)
Quarter: 2022Q2

REPORT INFORMATION
  Report Type: Spontaneous
  Country: FR (occurrence: FR)
  Receive Date: 20220520
  Receipt Date: 20220520
  Transmission Date: 20220720
  Serious: Yes (Death)
  Sender: FDA-Public Use
  Company Number: FR-SHIONOGI, INC-2022000432

PATIENT
  Sex: Male
  Weight: 170 kg

DRUGS (2)
  1. FETROJA [Suspect]
     Active Substance: CEFIDEROCOL SULFATE TOSYLATE
     Indication: Pneumonia pseudomonal
     Dosage: 6 G, QD
     Route: 042
     Dates: start: 20220420, end: 20220429
  2. FETROJA [Suspect]
     Active Substance: CEFIDEROCOL SULFATE TOSYLATE
     Indication: Multiple-drug resistance

REACTIONS (1)
  - General physical health deterioration [Fatal]
